FAERS Safety Report 5351568-2 (Version None)
Quarter: 2007Q2

REPORT INFORMATION
  Report Type: 
  Country: None (occurrence: None)
  Receive Date: 20070608
  Receipt Date: 20070605
  Transmission Date: 20071010
  Serious: Yes (Death)
  Sender: FDA-Public Use
  Company Number: US-GENENTECH-233890

PATIENT
  Sex: Female

DRUGS (9)
  1. RANIBIZUMAB [Suspect]
     Indication: MACULAR DEGENERATION
     Dosage: UNK, 1/MONTH
     Route: 031
     Dates: start: 20050509
  2. TYLENOL [Concomitant]
     Indication: PROPHYLAXIS
     Dates: start: 20021209
  3. LUTEIN [Concomitant]
     Indication: MACULAR DEGENERATION
     Dates: start: 20010101
  4. VITEYES [Concomitant]
     Indication: MACULAR DEGENERATION
     Dates: start: 20040707
  5. PREDNISONE TAB [Concomitant]
     Indication: OSTEOARTHRITIS
     Dates: start: 20060303
  6. FOSAMAX [Concomitant]
     Indication: OSTEOPOROSIS
     Dates: start: 20060301
  7. CALCIUM CHLORIDE [Concomitant]
     Indication: OSTEOPOROSIS
     Dates: start: 20060301
  8. IODINE [Concomitant]
     Indication: OSTEOPOROSIS
     Dates: start: 20060327
  9. VICODIN [Concomitant]
     Indication: MOUTH INJURY
     Dates: start: 20060502

REACTIONS (1)
  - PANCREATIC CARCINOMA [None]
